FAERS Safety Report 5396789-8 (Version None)
Quarter: 2007Q3

REPORT INFORMATION
  Report Type: 
  Country: None (occurrence: None)
  Receive Date: 20070725
  Receipt Date: 20070716
  Transmission Date: 20080115
  Serious: Yes (Life-Threatening, Hospitalization, Disabling)
  Sender: FDA-Public Use
  Company Number: DE-ROCHE-507404

PATIENT
  Age: 51 Year
  Sex: Male
  Weight: 56 kg

DRUGS (2)
  1. PEG-INTERFERON A-2A (RO 25-8310) [Suspect]
     Dosage: DOSAGE REPORTED AS 180MCG/WEEK.
     Route: 058
     Dates: start: 20060521, end: 20070323
  2. RIBAVIRIN [Suspect]
     Dosage: DOSAGE REPORTED AS 1000MG/DAY.
     Route: 048
     Dates: start: 20060521, end: 20070323

REACTIONS (1)
  - RENAL FAILURE ACUTE [None]
